FAERS Safety Report 4919482-1 (Version None)
Quarter: 2006Q1

REPORT INFORMATION
  Report Type: 
  Country: None (occurrence: None)
  Receive Date: 20060113
  Receipt Date: 20051103
  Transmission Date: 20060701
  Serious: No
  Sender: FDA-Public Use
  Company Number: 2005SP003828

PATIENT
  Age: 77 Year
  Sex: Female
  Weight: 76.2043 kg

DRUGS (4)
  1. LUNESTA [Suspect]
     Indication: INSOMNIA RELATED TO ANOTHER MENTAL CONDITION
     Dosage: 2 MG;HS;ORAL, 4 MG;HS;ORAL
     Route: 048
     Dates: start: 20051101, end: 20051101
  2. LUNESTA [Suspect]
     Indication: INSOMNIA RELATED TO ANOTHER MENTAL CONDITION
     Dosage: 2 MG;HS;ORAL, 4 MG;HS;ORAL
     Route: 048
     Dates: start: 20051102, end: 20051102
  3. LEXAPRO [Concomitant]
  4. LORAZEPAM [Concomitant]

REACTIONS (1)
  - INSOMNIA [None]
